FAERS Safety Report 16483088 (Version 3)
Quarter: 2019Q3

REPORT INFORMATION
  Report Type: Report from Study
  Country: GB (occurrence: GB)
  Receive Date: 20190627
  Receipt Date: 20190827
  Transmission Date: 20191004
  Serious: Yes (Other)
  Sender: FDA-Public Use
  Company Number: PHHY2019GB147819

PATIENT
  Sex: Female

DRUGS (1)
  1. COSENTYX [Suspect]
     Active Substance: SECUKINUMAB
     Indication: PSORIASIS
     Dosage: 300 MG, QMO (PREFILLED PEN)
     Route: 058
     Dates: start: 20180227

REACTIONS (9)
  - Decreased immune responsiveness [Unknown]
  - Influenza like illness [Unknown]
  - Psoriasis [Unknown]
  - Feeling abnormal [Recovered/Resolved]
  - Sinusitis [Recovered/Resolved]
  - Influenza [Unknown]
  - Lower respiratory tract infection [Recovering/Resolving]
  - Nasopharyngitis [Recovered/Resolved]
  - Ill-defined disorder [Unknown]
